FAERS Safety Report 5787270-2 (Version None)
Quarter: 2008Q2

REPORT INFORMATION
  Report Type: 
  Country: None (occurrence: None)
  Receive Date: 20080618
  Receipt Date: 20080609
  Transmission Date: 20081010
  Serious: Yes (Other)
  Sender: FDA-Public Use
  Company Number: 8033383

PATIENT
  Age: 21 Year
  Sex: Female
  Weight: 63.6 kg

DRUGS (3)
  1. KEPPRA [Suspect]
     Indication: CONVULSION
     Dosage: 500 MG 2/D PO
     Route: 048
  2. CHEMOTHERAPY [Concomitant]
  3. LEVAQUIN [Concomitant]

REACTIONS (2)
  - THROMBOCYTOPENIA [None]
  - URINARY TRACT INFECTION [None]
